FAERS Safety Report 14648784 (Version 2)
Quarter: 2018Q1

REPORT INFORMATION
  Report Type: Spontaneous
  Country: AU (occurrence: AU)
  Receive Date: 20180316
  Receipt Date: 20180327
  Transmission Date: 20180509
  Serious: Yes (Other)
  Sender: FDA-Public Use
  Company Number: AU-PFIZER INC-2018103490

PATIENT
  Age: 80 Year
  Sex: Male

DRUGS (5)
  1. CARTIA /00002701/ [Suspect]
     Active Substance: ASPIRIN
  2. REVATIO [Suspect]
     Active Substance: SILDENAFIL CITRATE
     Dosage: 1 DF, 3X/DAY
  3. REVATIO [Suspect]
     Active Substance: SILDENAFIL CITRATE
     Indication: PULMONARY HYPERTENSION
     Dosage: 0.5 DF, 3X/DAY
  4. REVATIO [Suspect]
     Active Substance: SILDENAFIL CITRATE
     Dosage: 0.5 DF, 3X/DAY
  5. VALIUM [Concomitant]
     Active Substance: DIAZEPAM
     Indication: ANXIETY
     Dosage: 1 MG (0.5 DF), UNK

REACTIONS (15)
  - Dizziness [Unknown]
  - Tremor [Unknown]
  - Dyspepsia [Unknown]
  - Balance disorder [Unknown]
  - Lacrimation increased [Unknown]
  - Non-cardiac chest pain [Unknown]
  - Eye disorder [Unknown]
  - Hypotension [Unknown]
  - Decreased appetite [Unknown]
  - Epistaxis [Unknown]
  - Condition aggravated [Unknown]
  - Malaise [Unknown]
  - Muscular weakness [Unknown]
  - Dyspnoea [Unknown]
  - Hypoacusis [Unknown]
